FAERS Safety Report 19230683 (Version 1)
Quarter: 2021Q2

REPORT INFORMATION
  Report Type: Spontaneous
  Country: US (occurrence: US)
  Receive Date: 20210507
  Receipt Date: 20210507
  Transmission Date: 20210717
  Serious: Yes (Hospitalization)
  Sender: FDA-Public Use
  Company Number: None

PATIENT
  Age: 69 Year
  Sex: Female

DRUGS (13)
  1. BACTRIM [Concomitant]
     Active Substance: SULFAMETHOXAZOLE\TRIMETHOPRIM
  2. AMLODIPINE [Concomitant]
     Active Substance: AMLODIPINE BESYLATE
  3. DILTIAZEM. [Concomitant]
     Active Substance: DILTIAZEM
  4. ESCITALOPRAM [Concomitant]
     Active Substance: ESCITALOPRAM OXALATE
  5. PRENATAL [Concomitant]
     Active Substance: VITAMINS
  6. PANTOPRAZOLE [Concomitant]
     Active Substance: PANTOPRAZOLE
  7. TACROLIMUS. [Suspect]
     Active Substance: TACROLIMUS
     Indication: RENAL TRANSPLANT
     Route: 048
     Dates: start: 20200515
  8. ACYCLOVIR. [Concomitant]
     Active Substance: ACYCLOVIR
  9. VITAMIN D [Concomitant]
     Active Substance: VITAMIN D NOS
  10. ANTACID [Concomitant]
     Active Substance: ALUMINUM HYDROXIDE\CALCIUM CARBONATE\DIMETHICONE\MAGNESIUM HYDROXIDE
  11. PRAVASTATIN. [Concomitant]
     Active Substance: PRAVASTATIN
  12. IPATROPIUM [Concomitant]
  13. MYCOPHENOLATE [Concomitant]
     Active Substance: MYCOPHENOLIC ACID

REACTIONS (1)
  - Oesophageal operation [None]

NARRATIVE: CASE EVENT DATE: 20210504
